FAERS Safety Report 4783597-1 (Version None)
Quarter: 2005Q3

REPORT INFORMATION
  Report Type: 
  Country: None (occurrence: None)
  Receive Date: 20050929
  Receipt Date: 20050915
  Transmission Date: 20060218
  Serious: Yes (Death, Life-Threatening, Hospitalization, Other)
  Sender: FDA-Public Use
  Company Number: US-JNJFOC-20050200663

PATIENT
  Sex: Female
  Weight: 109.32 kg

DRUGS (11)
  1. DURAGESIC-100 [Suspect]
     Route: 062
  2. DURAGESIC-100 [Suspect]
     Route: 062
  3. DURAGESIC-100 [Suspect]
     Route: 062
  4. HYDROCODONE [Suspect]
     Indication: PAIN
     Route: 048
  5. CLONAZEPAM [Concomitant]
     Route: 048
  6. EFFEXOR XR [Concomitant]
     Route: 048
  7. PROMETHAZINE [Concomitant]
     Route: 048
  8. SKELAXIN [Concomitant]
     Route: 048
  9. ZYRTEC [Concomitant]
     Route: 048
  10. VIOXX [Concomitant]
     Route: 048
  11. IMITREX [Concomitant]
     Route: 048

REACTIONS (133)
  - ABDOMINAL PAIN [None]
  - ABNORMAL BEHAVIOUR [None]
  - ACTIVATED PARTIAL THROMBOPLASTIN TIME PROLONGED [None]
  - ADRENAL CORTICAL INSUFFICIENCY [None]
  - ADRENAL INSUFFICIENCY [None]
  - ALANINE AMINOTRANSFERASE INCREASED [None]
  - ALOPECIA [None]
  - AMENORRHOEA [None]
  - ANOXIC ENCEPHALOPATHY [None]
  - ANTIPHOSPHOLIPID SYNDROME [None]
  - ANXIETY [None]
  - APPLICATION SITE IRRITATION [None]
  - ARTHRALGIA [None]
  - ASPARTATE AMINOTRANSFERASE INCREASED [None]
  - ASTHENIA [None]
  - ASTHMA [None]
  - BACK PAIN [None]
  - BLOOD BICARBONATE INCREASED [None]
  - BLOOD CHLORIDE DECREASED [None]
  - BLOOD CREATINE PHOSPHOKINASE INCREASED [None]
  - BLOOD CREATINE PHOSPHOKINASE MB INCREASED [None]
  - BLOOD POTASSIUM INCREASED [None]
  - BLOOD SODIUM DECREASED [None]
  - BLOOD THYROID STIMULATING HORMONE INCREASED [None]
  - BLOOD TRIGLYCERIDES INCREASED [None]
  - BONE PAIN [None]
  - BREATH SOUNDS ABNORMAL [None]
  - BUNDLE BRANCH BLOCK RIGHT [None]
  - C-REACTIVE PROTEIN INCREASED [None]
  - CARDIAC DISORDER [None]
  - CARDIOMEGALY [None]
  - CEREBROVASCULAR ACCIDENT [None]
  - CHEST DISCOMFORT [None]
  - CHEST PAIN [None]
  - CHILLS [None]
  - COMA [None]
  - CONFUSIONAL STATE [None]
  - DEATH [None]
  - DEHYDRATION [None]
  - DEPRESSED LEVEL OF CONSCIOUSNESS [None]
  - DEPRESSION [None]
  - DERMATITIS PSORIASIFORM [None]
  - DIFFICULTY IN WALKING [None]
  - DIPLOPIA [None]
  - DIZZINESS [None]
  - DRUG DISPENSING ERROR [None]
  - DRUG HYPERSENSITIVITY [None]
  - DYSLIPIDAEMIA [None]
  - DYSPNOEA [None]
  - ELECTROENCEPHALOGRAM ABNORMAL [None]
  - EXCORIATION [None]
  - EXOSTOSIS [None]
  - FALL [None]
  - FATIGUE [None]
  - FIBRIN D DIMER INCREASED [None]
  - FIBROMYALGIA [None]
  - FLUID OVERLOAD [None]
  - GASTROINTESTINAL HAEMORRHAGE [None]
  - HAEMATEMESIS [None]
  - HAEMATOCHEZIA [None]
  - HAEMOGLOBIN DECREASED [None]
  - HAEMOPTYSIS [None]
  - HAEMORRHOIDAL HAEMORRHAGE [None]
  - HAEMORRHOIDS [None]
  - HEAD INJURY [None]
  - HEADACHE [None]
  - HYPERCOAGULATION [None]
  - HYPERGLYCAEMIA [None]
  - HYPERHIDROSIS [None]
  - HYPERLIPIDAEMIA [None]
  - HYPERTHYROIDISM [None]
  - HYPOAESTHESIA [None]
  - HYPOKALAEMIA [None]
  - HYPOVENTILATION [None]
  - INTERNATIONAL NORMALISED RATIO INCREASED [None]
  - INTERVERTEBRAL DISC DEGENERATION [None]
  - INTERVERTEBRAL DISC PROTRUSION [None]
  - IRON DEFICIENCY ANAEMIA [None]
  - JOINT INJURY [None]
  - LICHENOID KERATOSIS [None]
  - LUMBAR SPINAL STENOSIS [None]
  - LUNG NEOPLASM [None]
  - MAJOR DEPRESSION [None]
  - MALAISE [None]
  - MENORRHAGIA [None]
  - MIGRAINE [None]
  - MITRAL VALVE INCOMPETENCE [None]
  - MULTIPLE SCLEROSIS [None]
  - MUSCULOSKELETAL STIFFNESS [None]
  - MYALGIA [None]
  - MYOCARDIAL INFARCTION [None]
  - NARCOTIC INTOXICATION [None]
  - NAUSEA [None]
  - NECK PAIN [None]
  - NUCLEAR MAGNETIC RESONANCE IMAGING BRAIN ABNORMAL [None]
  - OEDEMA PERIPHERAL [None]
  - OVERDOSE [None]
  - OXYGEN SATURATION DECREASED [None]
  - PAIN IN EXTREMITY [None]
  - PARAESTHESIA [None]
  - PERSONALITY DISORDER [None]
  - PHARMACEUTICAL PRODUCT COMPLAINT [None]
  - PHARYNGOLARYNGEAL PAIN [None]
  - PICKWICKIAN SYNDROME [None]
  - PLEURITIC PAIN [None]
  - PO2 DECREASED [None]
  - PROTHROMBIN TIME PROLONGED [None]
  - PSORIASIS [None]
  - PULMONARY EMBOLISM [None]
  - PYREXIA [None]
  - RASH [None]
  - REFUSAL OF TREATMENT BY PATIENT [None]
  - RENAL FAILURE [None]
  - RESPIRATORY FAILURE [None]
  - RESPIRATORY RATE INCREASED [None]
  - RHINITIS ALLERGIC [None]
  - SENSORY DISTURBANCE [None]
  - SHOULDER PAIN [None]
  - SINUS TACHYCARDIA [None]
  - SNORING [None]
  - SOMNOLENCE [None]
  - SUICIDAL IDEATION [None]
  - SYNCOPE [None]
  - SYSTEMIC LUPUS ERYTHEMATOSUS [None]
  - TENDERNESS [None]
  - THYROXINE FREE DECREASED [None]
  - TINNITUS [None]
  - TRANSIENT ISCHAEMIC ATTACK [None]
  - TRICUSPID VALVE INCOMPETENCE [None]
  - TROPONIN I INCREASED [None]
  - UNEVALUABLE EVENT [None]
  - VOMITING [None]
  - WEIGHT INCREASED [None]
